FAERS Safety Report 22284671 (Version 1)
Quarter: 2023Q2

REPORT INFORMATION
  Report Type: Report from Study
  Country: US (occurrence: None)
  Receive Date: 20230504
  Receipt Date: 20230504
  Transmission Date: 20230722
  Serious: Yes (Congenital Anomaly)
  Sender: FDA-Public Use
  Company Number: 2023A097502

PATIENT
  Age: 0 Week

DRUGS (1)
  1. QUETIAPINE [Suspect]
     Active Substance: QUETIAPINE
     Indication: Mental disorder
     Dosage: EXACT DOSE IS UNKNOWN
     Route: 064

REACTIONS (5)
  - Congenital hydronephrosis [Unknown]
  - Anomaly of external ear congenital [Unknown]
  - Clinodactyly [Unknown]
  - Congenital skin dimples [Unknown]
  - Foetal exposure during pregnancy [Unknown]
